FAERS Safety Report 9007100 (Version 3)
Quarter: 2014Q1

REPORT INFORMATION
  Report Type: Spontaneous
  Country: US (occurrence: US)
  Receive Date: 20130110
  Receipt Date: 20140203
  Transmission Date: 20141002
  Serious: Yes (Other)
  Sender: FDA-Public Use
  Company Number: US-PFIZER INC-2013009172

PATIENT
  Age: 69 Year
  Sex: Female
  Weight: 107 kg

DRUGS (16)
  1. XALATAN [Suspect]
     Indication: GLAUCOMA
     Dosage: 1 GTT, DAILY
     Route: 047
     Dates: start: 20050620
  2. XALATAN [Suspect]
     Dosage: BOTH EYES , DAILY
     Route: 047
     Dates: start: 2007
  3. METFORMIN [Concomitant]
     Indication: DIABETES MELLITUS
     Dosage: 1000 MG, 2X/DAY
  4. INSULIN [Concomitant]
     Indication: DIABETES MELLITUS
     Dosage: 50 UNITS AT ONE TIME AND 35 UNITS ANOTHER TIME, 2X/DAY
  5. LIRAGLUTIDE (NN2211) [Concomitant]
     Indication: DIABETES MELLITUS
     Dosage: 1.2 IU, DAILY
  6. CLOPIDOGREL BISULFATE [Concomitant]
     Indication: CARDIAC DISORDER
     Dosage: 75 MG, DAILY
  7. CLOPIDOGREL BISULFATE [Concomitant]
     Indication: HYPERTENSION
  8. BYSTOLIC [Concomitant]
     Indication: CARDIAC DISORDER
     Dosage: 10 MG, DAILY
  9. BYSTOLIC [Concomitant]
     Indication: HYPERTENSION
  10. BENICAR HCT [Concomitant]
     Indication: CARDIAC DISORDER
     Dosage: 40/12.5 MG, UNK
  11. BENICAR HCT [Concomitant]
     Indication: HYPERTENSION
  12. ACETYLSALICYLIC ACID [Concomitant]
     Indication: CARDIAC DISORDER
     Dosage: 325 MG, DAILY
  13. ACETYLSALICYLIC ACID [Concomitant]
     Indication: HYPERTENSION
  14. SIMVASTATIN [Concomitant]
     Indication: BLOOD CHOLESTEROL INCREASED
     Dosage: 80 MG, DAILY
  15. PLAVIX [Concomitant]
     Dosage: UNK
  16. BENICAR [Concomitant]
     Indication: HYPERTENSION
     Dosage: UNK

REACTIONS (1)
  - Breast cancer [Recovered/Resolved]
